FAERS Safety Report 24628906 (Version 2)
Quarter: 2025Q2

REPORT INFORMATION
  Report Type: Spontaneous
  Country: DE (occurrence: DE)
  Receive Date: 20241118
  Receipt Date: 20250402
  Transmission Date: 20250717
  Serious: Yes (Other)
  Sender: NOVARTIS
  Company Number: DE-002147023-NVSC2024DE220706

PATIENT
  Age: 75 Year
  Sex: Male

DRUGS (2)
  1. BEOVU [Suspect]
     Active Substance: BROLUCIZUMAB-DBLL
     Indication: Diabetic retinal oedema
     Route: 031
  2. FARICIMAB [Concomitant]
     Active Substance: FARICIMAB
     Indication: Diabetic retinal oedema
     Route: 065

REACTIONS (3)
  - Eye irritation [Recovering/Resolving]
  - Intraocular pressure increased [Recovering/Resolving]
  - Vitreous degeneration [Recovering/Resolving]

NARRATIVE: CASE EVENT DATE: 20241111
